FAERS Safety Report 7190219-1 (Version None)
Quarter: 2010Q4

REPORT INFORMATION
  Report Type: 
  Country: None (occurrence: None)
  Receive Date: 20101210
  Receipt Date: 20101125
  Transmission Date: 20110411
  Serious: Yes (Death, Hospitalization)
  Sender: FDA-Public Use
  Company Number: FKO201000538

PATIENT
  Age: 45 Year
  Sex: Male

DRUGS (3)
  1. CISPLATIN [Suspect]
     Indication: GASTRIC CANCER
     Dosage: (60 MG/M2, ON DAY 1 IN A 3-WEEK CYCLE) INTRAVENOUS
     Route: 042
  2. CAPECITABINE [Suspect]
     Indication: GASTRIC CANCER
     Dosage: 200 MG/M2 (125 MG/M2, ON DAY 1 THROUGH 14) ORAL
     Route: 048
  3. 5 FLUOROURACIL (FLUOROURACIL 5 - FU) (FLUOROURACIL 5 FU) [Concomitant]

REACTIONS (7)
  - ABDOMINAL PAIN [None]
  - CARDIAC ARREST [None]
  - COLITIS ISCHAEMIC [None]
  - DIARRHOEA HAEMORRHAGIC [None]
  - GENERAL PHYSICAL HEALTH DETERIORATION [None]
  - TRUNCUS COELIACUS THROMBOSIS [None]
  - URINE OUTPUT DECREASED [None]
